FAERS Safety Report 10428929 (Version 2)
Quarter: 2014Q3

REPORT INFORMATION
  Report Type: Spontaneous
  Country: JP (occurrence: JP)
  Receive Date: 20140904
  Receipt Date: 20140904
  Transmission Date: 20150326
  Serious: Yes (Hospitalization)
  Sender: FDA-Public Use
  Company Number: JP-AMGEN-JPNSP2014064443

PATIENT
  Age: 79 Year
  Sex: Male
  Weight: 62 kg

DRUGS (18)
  1. RANMARK [Suspect]
     Active Substance: DENOSUMAB
     Indication: METASTASES TO BONE
     Dosage: 120 MG, QD
     Route: 058
     Dates: start: 20140725, end: 20140725
  2. HERCEPTIN [Concomitant]
     Active Substance: TRASTUZUMAB
     Indication: METASTASES TO BONE
     Dosage: 520 MG, QD
     Route: 042
     Dates: start: 20140728, end: 20140728
  3. PARAPLATIN [Concomitant]
     Active Substance: CARBOPLATIN
     Dosage: UNK
     Route: 065
  4. BRIPLATIN [Concomitant]
     Active Substance: CISPLATIN
     Indication: METASTASES TO BONE
     Dosage: 100 MG, QD
     Route: 042
     Dates: start: 20140729, end: 20140729
  5. MICARDIS [Concomitant]
     Active Substance: TELMISARTAN
     Indication: HYPERTENSION
     Dosage: 40 MG, QD
     Route: 048
  6. HERCEPTIN [Concomitant]
     Active Substance: TRASTUZUMAB
     Indication: GASTRIC CANCER
  7. LIPITOR [Concomitant]
     Active Substance: ATORVASTATIN CALCIUM
     Indication: HYPERLIPIDAEMIA
     Dosage: 5 MG, QD
     Route: 048
  8. EMEND [Concomitant]
     Active Substance: APREPITANT
     Indication: PROPHYLAXIS OF NAUSEA AND VOMITING
     Dosage: 80 MG, QD
     Route: 048
     Dates: start: 20140729, end: 20140731
  9. DEXART [Concomitant]
     Active Substance: DEXAMETHASONE SODIUM PHOSPHATE
     Indication: PROPHYLAXIS OF NAUSEA AND VOMITING
     Dosage: 9.9 MG, QD
     Route: 042
     Dates: start: 20140729, end: 20140731
  10. RANMARK [Suspect]
     Active Substance: DENOSUMAB
     Indication: GASTRIC CANCER
  11. XELODA [Concomitant]
     Active Substance: CAPECITABINE
     Indication: GASTRIC CANCER
  12. ARGAMATE [Concomitant]
     Active Substance: POLYSTYRENE
     Indication: HYPERKALAEMIA
     Dosage: 1 DF, TID
     Route: 048
     Dates: start: 20140806, end: 20140814
  13. BRIPLATIN [Concomitant]
     Active Substance: CISPLATIN
     Indication: GASTRIC CANCER
  14. XELODA [Concomitant]
     Active Substance: CAPECITABINE
     Indication: METASTASES TO BONE
     Dosage: 1500 MG, BID
     Route: 065
     Dates: start: 20140729
  15. AMLODIPINE [Concomitant]
     Active Substance: AMLODIPINE BESYLATE
     Indication: HYPERTENSION
     Dosage: 5 MG, QD
     Route: 048
  16. HIRUDOID                           /00723701/ [Concomitant]
     Indication: PALMAR-PLANTAR ERYTHRODYSAESTHESIA SYNDROME
     Dosage: UNK
     Route: 050
     Dates: start: 20140725
  17. ALOXI [Concomitant]
     Active Substance: PALONOSETRON HYDROCHLORIDE
     Indication: PROPHYLAXIS OF NAUSEA AND VOMITING
     Dosage: 0.75 MG, QD
     Route: 042
     Dates: start: 20140729, end: 20140729
  18. MANNITOL. [Concomitant]
     Active Substance: MANNITOL
     Indication: URINE OUTPUT
     Dosage: 300 ML, QD
     Route: 042
     Dates: start: 20140729, end: 20140729

REACTIONS (4)
  - Renal impairment [Recovering/Resolving]
  - Hyperkalaemia [Recovered/Resolved]
  - Ventricular tachycardia [Recovered/Resolved]
  - Hypocalcaemia [Recovering/Resolving]

NARRATIVE: CASE EVENT DATE: 20140728
